FAERS Safety Report 13632935 (Version 1)
Quarter: 2017Q2

REPORT INFORMATION
  Report Type: Spontaneous
  Country: US (occurrence: US)
  Receive Date: 20170531
  Receipt Date: 20170531
  Transmission Date: 20170830
  Serious: No
  Sender: FDA-Public Use
  Company Number: US-ASTELLAS-1490851

PATIENT
  Sex: Female

DRUGS (11)
  1. TARCEVA [Suspect]
     Active Substance: ERLOTINIB HYDROCHLORIDE
     Indication: LUNG NEOPLASM MALIGNANT
     Dosage: FREQUENCY: DAILY
     Route: 048
     Dates: start: 20141007
  2. LEVOTHYROXIN [Concomitant]
     Active Substance: LEVOTHYROXINE
  3. FIBER SUPPLEMENT [Concomitant]
  4. OXYBUTYNIN [Concomitant]
     Active Substance: OXYBUTYNIN
  5. WARFARIN [Concomitant]
     Active Substance: WARFARIN
  6. ALLEGRA [Concomitant]
     Active Substance: FEXOFENADINE HYDROCHLORIDE
  7. TARCEVA [Suspect]
     Active Substance: ERLOTINIB HYDROCHLORIDE
     Dosage: FREQUENCY: DAILY?DOSE REDUCED
     Route: 048
     Dates: start: 20141009
  8. DILTIAZEM. [Concomitant]
     Active Substance: DILTIAZEM
  9. CLARITIN [Concomitant]
     Active Substance: LORATADINE
  10. LOVASTATIN. [Concomitant]
     Active Substance: LOVASTATIN
  11. GABAPENTIN. [Concomitant]
     Active Substance: GABAPENTIN

REACTIONS (3)
  - Diarrhoea [Unknown]
  - Weight decreased [Unknown]
  - Asthenia [Unknown]
